FAERS Safety Report 8437234-5 (Version None)
Quarter: 2012Q2

REPORT INFORMATION
  Report Type: 
  Country: None (occurrence: None)
  Receive Date: 20120614
  Receipt Date: 20120608
  Transmission Date: 20120825
  Serious: Yes (Death, Hospitalization)
  Sender: FDA-Public Use
  Company Number: US-PFIZER INC-2012131644

PATIENT
  Sex: Male
  Weight: 102.1 kg

DRUGS (2)
  1. TEMSIROLIMUS [Suspect]
     Indication: MANTLE CELL LYMPHOMA
     Dosage: 25 MG, WEEKLY
     Route: 042
     Dates: start: 20120404, end: 20120516
  2. VELCADE [Suspect]
     Indication: MANTLE CELL LYMPHOMA
     Dosage: 1.6 MG/M2, WEEKLY
     Route: 042
     Dates: start: 20120404, end: 20120516

REACTIONS (6)
  - DYSPNOEA [None]
  - DEATH [None]
  - RENAL FAILURE ACUTE [None]
  - URINARY TRACT INFECTION [None]
  - ATRIAL FIBRILLATION [None]
  - FATIGUE [None]
